FAERS Safety Report 18895280 (Version 3)
Quarter: 2021Q1

REPORT INFORMATION
  Report Type: Spontaneous
  Country: US (occurrence: US)
  Receive Date: 20210216
  Receipt Date: 20210329
  Transmission Date: 20210420
  Serious: Yes (Death, Hospitalization, Other)
  Sender: FDA-Public Use
  Company Number: US-SA-2021SA051377

PATIENT
  Age: 74 Year
  Sex: Female

DRUGS (3)
  1. ASPIRIN EC [Concomitant]
     Active Substance: ASPIRIN
     Dosage: LOW DOSE
  2. VITAMIN A NOS [Concomitant]
     Active Substance: VITAMIN A
  3. DUPIXENT [Suspect]
     Active Substance: DUPILUMAB
     Indication: DERMATITIS ATOPIC
     Dosage: 300 MG, QOW
     Route: 058
     Dates: start: 20181211

REACTIONS (2)
  - Adverse reaction [Unknown]
  - Death [Fatal]

NARRATIVE: CASE EVENT DATE: 20210316
